FAERS Safety Report 8426728 (Version 2)
Quarter: 2012Q4

REPORT INFORMATION
  Report Type: 
  Country: US (occurrence: US)
  Receive Date: 20120227
  Receipt Date: 20121008
  Transmission Date: 20130627
  Serious: Yes (Other)
  Sender: FDA-Public Use
  Company Number: US-PFIZER INC-2012049613

PATIENT
  Age: 52 Year
  Sex: Female
  Weight: 87.08 kg

DRUGS (3)
  1. LYRICA [Suspect]
     Indication: PERIPHERAL NERVE INJURY
     Dosage: (2 capsule 100mg ) mg, 2x/day
     Route: 048
     Dates: start: 2008
  2. LYRICA [Suspect]
     Indication: NERVE INJURY
  3. LYRICA [Suspect]
     Indication: PARAESTHESIA

REACTIONS (5)
  - Gout [Unknown]
  - Localised infection [Unknown]
  - Nausea [Recovering/Resolving]
  - Diarrhoea [Recovering/Resolving]
  - Pain [Not Recovered/Not Resolved]
